FAERS Safety Report 7597054-0 (Version None)
Quarter: 2011Q3

REPORT INFORMATION
  Report Type: 
  Country: None (occurrence: None)
  Receive Date: 20110708
  Receipt Date: 20110705
  Transmission Date: 20111222
  Serious: Yes (Hospitalization)
  Sender: FDA-Public Use
  Company Number: US-PFIZER INC-2011151235

PATIENT

DRUGS (1)
  1. LIPITOR [Suspect]

REACTIONS (1)
  - GASTROINTESTINAL TUBE INSERTION [None]
